FAERS Safety Report 6929132-0 (Version None)
Quarter: 2010Q3

REPORT INFORMATION
  Report Type: 
  Country: None (occurrence: None)
  Receive Date: 20100812
  Receipt Date: 20100727
  Transmission Date: 20110219
  Serious: Yes (Life-Threatening)
  Sender: FDA-Public Use
  Company Number: 2010S1000103

PATIENT
  Age: 2 Month
  Sex: Female

DRUGS (2)
  1. INOMAX [Suspect]
     Indication: PULMONARY HYPERTENSION
     Dosage: 20 PPM;CONT;INH
     Route: 055
     Dates: start: 20100725
  2. INOMAX [Suspect]
     Indication: PULMONARY HYPERTENSION
     Dosage: 20 PPM;CONT;INH
     Route: 055
     Dates: start: 20100725

REACTIONS (3)
  - DEVICE FAILURE [None]
  - HEART RATE DECREASED [None]
  - OXYGEN SATURATION DECREASED [None]
